FAERS Safety Report 8972419 (Version 1)
Quarter: 2012Q4

REPORT INFORMATION
  Report Type: Report from Study
  Country: ZA (occurrence: ZA)
  Receive Date: 20121218
  Receipt Date: 20121218
  Transmission Date: 20130627
  Serious: Yes (Death)
  Sender: FDA-Public Use
  Company Number: ZA-ROCHE-1170780

PATIENT
  Sex: Male

DRUGS (8)
  1. EPOETIN BETA [Suspect]
     Indication: PRODUCT USED FOR UNKNOWN INDICATION
     Route: 065
     Dates: start: 20090812, end: 20100209
  2. EPOETIN BETA [Suspect]
     Route: 065
     Dates: start: 20100903
  3. METHOXY POLYETHYLENE GLYCOL-EPOETIN BETA [Suspect]
     Indication: PRODUCT USED FOR UNKNOWN INDICATION
     Route: 065
     Dates: start: 20100209, end: 20100903
  4. PURICOS [Concomitant]
  5. CELEBREX [Concomitant]
  6. SIMVASTATIN [Concomitant]
  7. TITRALAC [Concomitant]
  8. LYRICA [Concomitant]

REACTIONS (1)
  - Road traffic accident [Fatal]
